FAERS Safety Report 8863186 (Version 1)
Quarter: 2012Q4

REPORT INFORMATION
  Report Type: 
  Country: US (occurrence: US)
  Receive Date: 20121026
  Receipt Date: 20121026
  Transmission Date: 20130627
  Serious: Yes (Death)
  Sender: FDA-Public Use
  Company Number: US-ROCHE-1133641

PATIENT
  Sex: Male

DRUGS (12)
  1. RITUXAN [Suspect]
     Indication: CHRONIC LYMPHOCYTIC LEUKAEMIA
     Route: 042
     Dates: start: 20000927
  2. CTX [Concomitant]
     Route: 065
     Dates: start: 20000814
  3. CTX [Concomitant]
     Route: 065
     Dates: start: 20000905
  4. PREDNISONE [Concomitant]
     Dosage: 100x5
     Route: 065
     Dates: start: 20000814
  5. PREDNISONE [Concomitant]
     Dosage: 100x5
     Route: 065
     Dates: start: 20000905
  6. COMPAZINE [Concomitant]
     Route: 065
     Dates: start: 20000814
  7. COMPAZINE [Concomitant]
     Route: 048
     Dates: start: 20000927
  8. DECADRON [Concomitant]
     Route: 065
     Dates: start: 20000814
  9. DECADRON [Concomitant]
     Route: 065
     Dates: start: 20000927
  10. BENADRYL [Concomitant]
     Route: 065
     Dates: start: 20000927
  11. ANZEMET [Concomitant]
     Route: 065
     Dates: start: 20000814
  12. TYLENOL [Concomitant]
     Route: 065
     Dates: start: 20000927

REACTIONS (2)
  - Death [Fatal]
  - Asthenia [Unknown]
